FAERS Safety Report 19361351 (Version 2)
Quarter: 2021Q2

REPORT INFORMATION
  Report Type: Spontaneous
  Country: JP (occurrence: JP)
  Receive Date: 20210603
  Receipt Date: 20210629
  Transmission Date: 20210717
  Serious: Yes (Hospitalization, Other)
  Sender: FDA-Public Use
  Company Number: JP-SAKK-2021SA180452AA

PATIENT
  Age: 51 Year
  Sex: Male
  Weight: 59 kg

DRUGS (18)
  1. KIPRES [Concomitant]
     Active Substance: MONTELUKAST SODIUM
     Indication: ASTHMA
     Dosage: 10 MG, QD
     Route: 048
  2. RELVAR [Concomitant]
     Active Substance: FLUTICASONE FUROATE\VILANTEROL TRIFENATATE
     Indication: ASTHMA
  3. DUPIXENT [Suspect]
     Active Substance: DUPILUMAB
     Indication: ASTHMA
  4. PREDNISOLONE. [Suspect]
     Active Substance: PREDNISOLONE
     Dosage: 10 MG
     Route: 048
  5. FASENRA [Suspect]
     Active Substance: BENRALIZUMAB
     Indication: ASTHMA
  6. ALLERMIST [Concomitant]
     Active Substance: FLUTICASONE FUROATE
     Indication: SINUSITIS
     Dosage: QD
     Route: 045
  7. ALLERMIST [Concomitant]
     Active Substance: FLUTICASONE FUROATE
     Indication: ASTHMA
  8. FASENRA [Suspect]
     Active Substance: BENRALIZUMAB
     Indication: SINUSITIS
     Dosage: 30 MG, Q4W
     Route: 058
     Dates: start: 20200401, end: 20200523
  9. UNIPHYL [Concomitant]
     Active Substance: THEOPHYLLINE ANHYDROUS
     Indication: ASTHMA
  10. DUPIXENT [Suspect]
     Active Substance: DUPILUMAB
     Indication: CHRONIC RHINOSINUSITIS WITH NASAL POLYPS
     Dosage: 300 MG, QOW
     Route: 058
     Dates: start: 20201022, end: 20210325
  11. PREDNISOLONE. [Suspect]
     Active Substance: PREDNISOLONE
     Indication: SINUSITIS
     Dosage: DAILY DOSE: 2 MG
     Route: 048
  12. RELVAR [Concomitant]
     Active Substance: FLUTICASONE FUROATE\VILANTEROL TRIFENATATE
     Indication: SINUSITIS
     Dosage: QD
     Route: 055
  13. UNIPHYL [Concomitant]
     Active Substance: THEOPHYLLINE ANHYDROUS
     Indication: SINUSITIS
     Dosage: 200 MG, QD
     Route: 048
  14. SPIRIVA [Concomitant]
     Active Substance: TIOTROPIUM BROMIDE MONOHYDRATE
     Indication: SINUSITIS
     Dosage: QD
     Route: 055
  15. PREDNISOLONE. [Suspect]
     Active Substance: PREDNISOLONE
     Indication: ASTHMA
     Dosage: DAILY DOSE: 3 MG
     Route: 048
  16. PREDNISOLONE. [Suspect]
     Active Substance: PREDNISOLONE
     Dosage: 5 MG
     Route: 048
  17. KIPRES [Concomitant]
     Active Substance: MONTELUKAST SODIUM
     Indication: SINUSITIS
  18. SPIRIVA [Concomitant]
     Active Substance: TIOTROPIUM BROMIDE MONOHYDRATE
     Indication: ASTHMA

REACTIONS (4)
  - Pyrexia [Recovering/Resolving]
  - Cough [Recovering/Resolving]
  - Eosinophilic pneumonia [Recovering/Resolving]
  - Pruritus [Unknown]

NARRATIVE: CASE EVENT DATE: 20201029
